FAERS Safety Report 4750947-1 (Version None)
Quarter: 2005Q3

REPORT INFORMATION
  Report Type: 
  Country: None (occurrence: None)
  Receive Date: 20050818
  Receipt Date: 20050808
  Transmission Date: 20060218
  Serious: Yes (Hospitalization, Other)
  Sender: FDA-Public Use
  Company Number: 2005112645

PATIENT
  Sex: Female
  Weight: 102.0593 kg

DRUGS (13)
  1. DETROL LA [Suspect]
     Indication: URINARY INCONTINENCE
     Dosage: (2 MG,) ORAL
     Route: 048
  2. HERBAL PREPARATION (HERBAL PREPARATION) [Suspect]
     Indication: URINARY INCONTINENCE
  3. CALAN [Concomitant]
  4. XANAX [Concomitant]
  5. ALLOPURINOL [Concomitant]
  6. MOTRIN [Concomitant]
  7. HUMULIN N [Concomitant]
  8. CIMETIDINE [Concomitant]
  9. KLONOPIN [Concomitant]
  10. VALSARTAN [Concomitant]
  11. THEOPHYLLINE [Concomitant]
  12. CIPROFLOXACIN HCL [Concomitant]
  13. ALL OTHER THERAPEUTIC PRODUCTS (ALL OTHER THERAPEUTIC PRODUCTS) [Concomitant]

REACTIONS (8)
  - BLADDER DISORDER [None]
  - BODY HEIGHT DECREASED [None]
  - DRUG INEFFECTIVE [None]
  - MALAISE [None]
  - PAIN [None]
  - POLLAKIURIA [None]
  - ROAD TRAFFIC ACCIDENT [None]
  - VOMITING [None]
